FAERS Safety Report 12798800 (Version 1)
Quarter: 2016Q3

REPORT INFORMATION
  Report Type: Spontaneous
  Country: IE (occurrence: IE)
  Receive Date: 20160930
  Receipt Date: 20160930
  Transmission Date: 20161109
  Serious: Yes (Hospitalization)
  Sender: FDA-Public Use
  Company Number: IE-PFIZER INC-2014096560

PATIENT
  Age: 47 Year
  Sex: Male

DRUGS (5)
  1. RAMIPRIL. [Concomitant]
     Active Substance: RAMIPRIL
     Dosage: 10 MG, UNK
  2. INLYTA [Suspect]
     Active Substance: AXITINIB
     Indication: METASTATIC RENAL CELL CARCINOMA
     Dosage: 5 MG, 2X/DAY
     Dates: start: 20130901
  3. INLYTA [Suspect]
     Active Substance: AXITINIB
     Dosage: 10 MG, 2X/DAY
  4. BISOP [Concomitant]
     Dosage: 2.5 MG, 1X/DAY
  5. NOZINAN /00038601/ [Concomitant]
     Active Substance: LEVOMEPROMAZINE

REACTIONS (3)
  - Blood pressure increased [Unknown]
  - Confusional state [Unknown]
  - Muscular weakness [Unknown]
